FAERS Safety Report 7498457-5 (Version None)
Quarter: 2011Q2

REPORT INFORMATION
  Report Type: 
  Country: None (occurrence: None)
  Receive Date: 20110524
  Receipt Date: 20100114
  Transmission Date: 20111010
  Serious: No
  Sender: FDA-Public Use
  Company Number: 2010BI001878

PATIENT
  Sex: Female

DRUGS (1)
  1. TYSABRI [Suspect]
     Indication: MULTIPLE SCLEROSIS
     Route: 042
     Dates: start: 20061220

REACTIONS (4)
  - EYE DISORDER [None]
  - MULTIPLE SCLEROSIS RELAPSE [None]
  - GLAUCOMA [None]
  - FATIGUE [None]
